FAERS Safety Report 10712782 (Version 1)
Quarter: 2015Q1

REPORT INFORMATION
  Report Type: Spontaneous
  Country: US (occurrence: None)
  Receive Date: 20150114
  Receipt Date: 20150114
  Transmission Date: 20150721
  Serious: Yes (Hospitalization)
  Sender: FDA-Public Use
  Company Number: None

PATIENT
  Age: 67 Year
  Sex: Male
  Weight: 57.1 kg

DRUGS (2)
  1. DILTIAZEM [Suspect]
     Active Substance: DILTIAZEM
     Route: 048
     Dates: start: 20141120, end: 20141219
  2. METOPROLOL [Suspect]
     Active Substance: METOPROLOL
     Route: 048
     Dates: start: 20141120, end: 20141219

REACTIONS (6)
  - Refusal of treatment by patient [None]
  - Organ failure [None]
  - Acute kidney injury [None]
  - Acute myocardial infarction [None]
  - Atrial fibrillation [None]
  - Cardiogenic shock [None]

NARRATIVE: CASE EVENT DATE: 20141201
